FAERS Safety Report 24907128 (Version 3)
Quarter: 2025Q1

REPORT INFORMATION
  Report Type: Spontaneous
  Country: US (occurrence: US)
  Receive Date: 20250130
  Receipt Date: 20250310
  Transmission Date: 20250408
  Serious: No
  Sender: SANOFI AVENTIS
  Company Number: US-SA-2025SA028318

PATIENT
  Age: 48 Year
  Sex: Male

DRUGS (1)
  1. DUPIXENT [Suspect]
     Active Substance: DUPILUMAB
     Indication: Dermatitis atopic
     Dosage: 300MG, QW
     Route: 058

REACTIONS (8)
  - Pruritus [Unknown]
  - Wound [Unknown]
  - Inflammation [Unknown]
  - Erythema [Unknown]
  - Rash [Unknown]
  - Swelling [Unknown]
  - Oedema [Unknown]
  - Off label use [Unknown]
